FAERS Safety Report 5020083-8 (Version None)
Quarter: 2006Q2

REPORT INFORMATION
  Report Type: 
  Country: None (occurrence: None)
  Receive Date: 20060607
  Receipt Date: 20060124
  Transmission Date: 20061013
  Serious: Yes (Hospitalization)
  Sender: FDA-Public Use
  Company Number: JP-ROCHE-433896

PATIENT
  Age: 8 Year
  Sex: Male
  Weight: 25 kg

DRUGS (4)
  1. TAMIFLU [Suspect]
     Dosage: FORM: DRY SYRUP.
     Route: 048
     Dates: start: 20051226, end: 20051226
  2. MUCODYNE [Concomitant]
     Route: 048
     Dates: start: 20051226, end: 20051226
  3. ASVERIN [Concomitant]
     Route: 048
     Dates: start: 20051226, end: 20051226
  4. PERIACTIN [Concomitant]
     Route: 048
     Dates: start: 20051226, end: 20051226

REACTIONS (2)
  - ABNORMAL BEHAVIOUR [None]
  - DELIRIUM [None]
